FAERS Safety Report 9002618 (Version 3)
Quarter: 2013Q1

REPORT INFORMATION
  Report Type: Spontaneous
  Country: GB (occurrence: None)
  Receive Date: 20121226
  Receipt Date: 20130103
  Transmission Date: 20140127
  Serious: Yes (Hospitalization)
  Sender: FDA-Public Use
  Company Number: AUR-APL-2012-05430

PATIENT
  Age: 90 Year
  Sex: Female

DRUGS (7)
  1. RAMIPRIL (RAMIPRIL) [Suspect]
     Indication: PRODUCT USED FOR UNKNOWN INDICATION
  2. TRIMETHOPRIM [Suspect]
     Indication: URINARY TRACT INFECTION
     Dosage: 400 MG (200 MG, 2 IN 1 D), ORAL
     Route: 048
     Dates: start: 20110916, end: 20110920
  3. BISOPROLOL (BISOPROLOL) [Concomitant]
  4. CLOPIDOGREL (CLOPIDOGREL) [Concomitant]
  5. FERROUS SULPHATE (FERROUS SULFATE) [Concomitant]
  6. ISOSORBIDE MONONITRATE (ISOSORBIDE MONONITRATE) [Concomitant]
  7. ZOPICLONE (ZOPICLONE) [Concomitant]

REACTIONS (7)
  - Fall [None]
  - Renal failure acute [None]
  - Hyperkalaemia [None]
  - Blood pressure increased [None]
  - Urinary tract infection [None]
  - Cough [None]
  - Potentiating drug interaction [None]
